FAERS Safety Report 5734023-7 (Version None)
Quarter: 2008Q2

REPORT INFORMATION
  Report Type: 
  Country: None (occurrence: None)
  Receive Date: 20080509
  Receipt Date: 20080429
  Transmission Date: 20081010
  Serious: Yes (Hospitalization)
  Sender: FDA-Public Use
  Company Number: FR-PFIZER INC-2008037998

PATIENT
  Sex: Female

DRUGS (5)
  1. TRIFLUCAN [Suspect]
     Dates: start: 20070123, end: 20070130
  2. VANCOMYCIN [Suspect]
     Route: 042
     Dates: start: 20061223, end: 20070129
  3. RIFAMPICIN [Suspect]
  4. FORTUM [Suspect]
     Indication: OSTEITIS
     Route: 042
     Dates: start: 20061213, end: 20070129
  5. DRUG, UNSPECIFIED [Concomitant]

REACTIONS (1)
  - BICYTOPENIA [None]
